FAERS Safety Report 21415485 (Version 1)
Quarter: 2022Q4

REPORT INFORMATION
  Report Type: Spontaneous
  Country: US (occurrence: None)
  Receive Date: 20221005
  Receipt Date: 20221005
  Transmission Date: 20230112
  Serious: Yes (Death)
  Sender: FDA-Public Use
  Company Number: None

PATIENT
  Age: 80 Year
  Sex: Male
  Weight: 151.9 kg

DRUGS (13)
  1. CAPECITABINE [Suspect]
     Active Substance: CAPECITABINE
     Indication: Colon cancer
     Dosage: FREQUENCY : TWICE A DAY;?
     Route: 048
  2. ALBUTEROL [Concomitant]
     Active Substance: ALBUTEROL
  3. BEVACIZUAMB [Concomitant]
  4. CETIRIZINE [Concomitant]
  5. FLONASE ALLERGY RELIEF [Concomitant]
     Active Substance: FLUTICASONE PROPIONATE
  6. HEPARIN [Concomitant]
  7. LIDOCAINE-PRILOAINE [Concomitant]
  8. LOMOTIL [Concomitant]
  9. MVASI [Concomitant]
  10. ONDANETRON [Concomitant]
  11. OXALIPLATIN [Concomitant]
  12. SODIUM CHLORIDE [Concomitant]
  13. TAMSULOSIN [Concomitant]

REACTIONS (1)
  - Death [None]
